FAERS Safety Report 12660626 (Version 2)
Quarter: 2016Q3

REPORT INFORMATION
  Report Type: Spontaneous
  Country: US (occurrence: US)
  Receive Date: 20160817
  Receipt Date: 20160901
  Transmission Date: 20161109
  Serious: No
  Sender: FDA-Public Use
  Company Number: US-RELYPSA-RLY2016001007

PATIENT

DRUGS (20)
  1. CLONIDINE HCL [Concomitant]
     Active Substance: CLONIDINE HYDROCHLORIDE
  2. DOXAZOSIN MESYLATE. [Concomitant]
     Active Substance: DOXAZOSIN MESYLATE
  3. VITAMIN D                          /00107901/ [Concomitant]
     Active Substance: ERGOCALCIFEROL
  4. HUMULIN N [Concomitant]
     Active Substance: INSULIN HUMAN
  5. CRESTOR [Concomitant]
     Active Substance: ROSUVASTATIN CALCIUM
  6. LEVOTHYROXINE SODIUM. [Concomitant]
     Active Substance: LEVOTHYROXINE SODIUM
  7. FORTEO [Concomitant]
     Active Substance: TERIPARATIDE
  8. ISOSORBIDE MONONITRATE. [Concomitant]
     Active Substance: ISOSORBIDE MONONITRATE
  9. GABAPENTIN. [Concomitant]
     Active Substance: GABAPENTIN
  10. HUMALOG [Concomitant]
     Active Substance: INSULIN LISPRO
  11. PROTONIX                           /00661201/ [Concomitant]
     Active Substance: OMEPRAZOLE
  12. PROCARDIA [Concomitant]
     Active Substance: NIFEDIPINE
  13. VELTASSA [Suspect]
     Active Substance: PATIROMER
     Indication: HYPERKALAEMIA
     Dosage: 8.4 G, QD
     Route: 048
     Dates: start: 20160421
  14. METOPROLOL TARTRATE. [Concomitant]
     Active Substance: METOPROLOL TARTRATE
  15. HYDROCODONE BITARTRATE AND ACETAMINOPHEN [Concomitant]
     Active Substance: ACETAMINOPHEN\HYDROCODONE BITARTRATE
  16. LASIX [Concomitant]
     Active Substance: FUROSEMIDE
  17. PRESERVISION AREDS [Concomitant]
     Active Substance: MINERALS\VITAMINS
  18. CLONAZEPAM. [Concomitant]
     Active Substance: CLONAZEPAM
  19. LEVEMIR [Concomitant]
     Active Substance: INSULIN DETEMIR
  20. ASPIRIN                            /00002701/ [Concomitant]
     Active Substance: ASPIRIN

REACTIONS (2)
  - No adverse event [Recovered/Resolved]
  - Drug ineffective [Unknown]
